FAERS Safety Report 5750393-8 (Version None)
Quarter: 2008Q2

REPORT INFORMATION
  Report Type: 
  Country: None (occurrence: None)
  Receive Date: 20080523
  Receipt Date: 20080523
  Transmission Date: 20081010
  Serious: Yes (Disabling, Other)
  Sender: FDA-Public Use
  Company Number: None

PATIENT
  Sex: Female
  Weight: 53.5244 kg

DRUGS (3)
  1. VYTORIN [Suspect]
     Indication: BLOOD CHOLESTEROL INCREASED
     Dosage: ONE TAB. PER DAY ORAL
     Route: 048
     Dates: start: 20061117, end: 20070202
  2. VYTORIN [Suspect]
     Indication: BLOOD CHOLESTEROL INCREASED
     Dosage: ONE TAB. PER DAY ORAL
     Route: 048
     Dates: start: 20070203, end: 20070302
  3. WARFARIN SODIUM [Concomitant]

REACTIONS (13)
  - ASTHENIA [None]
  - BLOOD GLUCOSE INCREASED [None]
  - BLOOD UREA INCREASED [None]
  - CACHEXIA [None]
  - HYPERTENSION [None]
  - HYPOTONIA [None]
  - MUSCLE DISORDER [None]
  - PAIN [None]
  - PAIN IN EXTREMITY [None]
  - RASH [None]
  - TREMOR [None]
  - URINE OUTPUT DECREASED [None]
  - WEIGHT DECREASED [None]
